FAERS Safety Report 6965124-3 (Version None)
Quarter: 2010Q3

REPORT INFORMATION
  Report Type: 
  Country: None (occurrence: None)
  Receive Date: 20100903
  Receipt Date: 20100823
  Transmission Date: 20110219
  Serious: Yes (Hospitalization)
  Sender: FDA-Public Use
  Company Number: IT-SANOFI-AVENTIS-2010SA051128

PATIENT
  Age: 78 Year
  Sex: Male

DRUGS (4)
  1. FUROSEMIDE [Suspect]
     Indication: NEPHROTIC SYNDROME
     Route: 048
     Dates: start: 20100721
  2. LANSOPRAZOLE [Concomitant]
  3. ACETYLSALICYLIC ACID [Concomitant]
  4. EPOETIN ALFA [Concomitant]

REACTIONS (1)
  - MYOCARDIAL ISCHAEMIA [None]
